FAERS Safety Report 7087767-1 (Version None)
Quarter: 2010Q4

REPORT INFORMATION
  Report Type: 
  Country: None (occurrence: None)
  Receive Date: 20101108
  Receipt Date: 20101027
  Transmission Date: 20110411
  Serious: Yes (Other)
  Sender: FDA-Public Use
  Company Number: US-ELI_LILLY_AND_COMPANY-US201011000081

PATIENT
  Sex: Female

DRUGS (11)
  1. CYMBALTA [Suspect]
     Indication: DEPRESSION
     Dosage: 30 MG, DAILY (1/D)
     Dates: start: 20100501, end: 20100701
  2. CYMBALTA [Suspect]
     Dosage: 60 MG, DAILY (1/D)
     Dates: start: 20100701, end: 20101001
  3. HUMALOG [Suspect]
     Indication: DIABETES MELLITUS
     Dosage: 1 D/F, UNK
     Dates: start: 20090101
  4. BYETTA [Concomitant]
  5. LEVEMIR [Concomitant]
  6. METFORMIN HCL [Concomitant]
  7. FUROSEMIDE [Concomitant]
  8. SIMVASTATIN [Concomitant]
  9. LISINOPRIL /USA/ [Concomitant]
  10. FISH OIL [Concomitant]
  11. ASPIRIN [Concomitant]
     Dosage: 81 MG, UNK

REACTIONS (5)
  - CATARACT [None]
  - DIABETIC RETINOPATHY [None]
  - DRUG INEFFECTIVE [None]
  - EYE HAEMORRHAGE [None]
  - MACULAR DEGENERATION [None]
